FAERS Safety Report 19354646 (Version 1)
Quarter: 2021Q2

REPORT INFORMATION
  Report Type: Spontaneous
  Country: US (occurrence: US)
  Receive Date: 20210602
  Receipt Date: 20210602
  Transmission Date: 20210717
  Serious: Yes (Other)
  Sender: FDA-Public Use
  Company Number: US-UROGEN PHARMA LTD.-2021-UGN-000028

PATIENT
  Age: 72 Year
  Sex: Male

DRUGS (5)
  1. JELMYTO [Suspect]
     Active Substance: MITOMYCIN
     Dosage: 1 MG (INSTILLATION)
  2. JELMYTO [Suspect]
     Active Substance: MITOMYCIN
     Dosage: 1 MG (INSTILLATION)
  3. JELMYTO [Suspect]
     Active Substance: MITOMYCIN
     Indication: PRODUCT USED FOR UNKNOWN INDICATION
     Dosage: 1 MG (INSTILLATION)
  4. JELMYTO [Suspect]
     Active Substance: MITOMYCIN
     Dosage: 1 MG (INSTILLATION)
  5. JELMYTO [Suspect]
     Active Substance: MITOMYCIN
     Dosage: 1 MG (INSTILLATION)

REACTIONS (1)
  - Bladder stenosis [Unknown]
